FAERS Safety Report 13591788 (Version 1)
Quarter: 2017Q2

REPORT INFORMATION
  Report Type: Spontaneous
  Country: US (occurrence: US)
  Receive Date: 20170530
  Receipt Date: 20170530
  Transmission Date: 20170830
  Serious: Yes (Other)
  Sender: FDA-Public Use
  Company Number: None

PATIENT
  Age: 64 Year
  Sex: Female

DRUGS (5)
  1. LIDOCAINE. [Suspect]
     Active Substance: LIDOCAINE
     Indication: PERIPHERAL NERVE LESION
     Route: 061
     Dates: start: 20100527, end: 20170529
  2. GABAPENTIN. [Concomitant]
     Active Substance: GABAPENTIN
  3. AMITRIPTYLINE HCL [Concomitant]
     Active Substance: AMITRIPTYLINE
  4. LIDOCAINE. [Suspect]
     Active Substance: LIDOCAINE
     Indication: COMPLEX REGIONAL PAIN SYNDROME
     Route: 061
     Dates: start: 20100527, end: 20170529
  5. METAXALONE. [Concomitant]
     Active Substance: METAXALONE

REACTIONS (4)
  - Product substitution issue [None]
  - Dermal absorption increased [None]
  - Device issue [None]
  - Heart rate decreased [None]

NARRATIVE: CASE EVENT DATE: 20170530
